FAERS Safety Report 8330987-6 (Version None)
Quarter: 2012Q2

REPORT INFORMATION
  Report Type: 
  Country: None (occurrence: None)
  Receive Date: 20120502
  Receipt Date: 20120405
  Transmission Date: 20120825
  Serious: No
  Sender: FDA-Public Use
  Company Number: US-AMGEN-USASP2011023451

PATIENT
  Age: 57 Year
  Sex: Female

DRUGS (2)
  1. ENBREL [Suspect]
     Indication: RHEUMATOID ARTHRITIS
     Dosage: 50 MG, QWK
     Dates: start: 20110426, end: 20110501
  2. HUMIRA [Concomitant]

REACTIONS (11)
  - DIZZINESS [None]
  - INJECTION SITE ERYTHEMA [None]
  - INJECTION SITE WARMTH [None]
  - NAUSEA [None]
  - ABDOMINAL PAIN [None]
  - HEADACHE [None]
  - DIARRHOEA [None]
  - RASH [None]
  - INJECTION SITE PAIN [None]
  - VOMITING [None]
  - INJECTION SITE SWELLING [None]
